FAERS Safety Report 25015467 (Version 1)
Quarter: 2025Q1

REPORT INFORMATION
  Report Type: Spontaneous
  Country: HR (occurrence: HR)
  Receive Date: 20250227
  Receipt Date: 20250227
  Transmission Date: 20250409
  Serious: Yes (Other)
  Sender: BRISTOL-MYERS SQUIBB COMPANY
  Company Number: HR-BRISTOL-MYERS SQUIBB COMPANY-2025-023403

PATIENT
  Age: 71 Year
  Sex: Male

DRUGS (9)
  1. OPDIVO [Suspect]
     Active Substance: NIVOLUMAB
     Indication: Renal cancer metastatic
     Dates: start: 20181128
  2. OPDIVO [Suspect]
     Active Substance: NIVOLUMAB
     Dates: start: 20190206
  3. OPDIVO [Suspect]
     Active Substance: NIVOLUMAB
     Dates: start: 20190227
  4. OPDIVO [Suspect]
     Active Substance: NIVOLUMAB
     Dates: start: 20190320
  5. OPDIVO [Suspect]
     Active Substance: NIVOLUMAB
     Dates: start: 201905, end: 202006
  6. YERVOY [Suspect]
     Active Substance: IPILIMUMAB
     Indication: Renal cancer metastatic
     Dates: start: 20181128
  7. YERVOY [Suspect]
     Active Substance: IPILIMUMAB
     Dates: start: 20190206
  8. YERVOY [Suspect]
     Active Substance: IPILIMUMAB
     Dates: start: 20190227
  9. YERVOY [Suspect]
     Active Substance: IPILIMUMAB
     Dates: start: 20190320

REACTIONS (8)
  - Hepatitis [Recovering/Resolving]
  - Musculoskeletal toxicity [Unknown]
  - Type 1 diabetes mellitus [Unknown]
  - Nephritis [Unknown]
  - Arthritis [Unknown]
  - Dermatitis [Unknown]
  - Acute cholecystitis necrotic [Unknown]
  - Skin toxicity [Unknown]

NARRATIVE: CASE EVENT DATE: 20180101
